FAERS Safety Report 9468150 (Version 1)
Quarter: 2013Q3

REPORT INFORMATION
  Report Type: Spontaneous
  Country: CA (occurrence: CA)
  Receive Date: 20130821
  Receipt Date: 20130821
  Transmission Date: 20140515
  Serious: Yes (Life-Threatening, Hospitalization)
  Sender: FDA-Public Use
  Company Number: CA-ROCHE-1262420

PATIENT
  Age: 17 Year
  Sex: Female
  Weight: 49 kg

DRUGS (14)
  1. CELLCEPT [Suspect]
     Indication: PRODUCT USED FOR UNKNOWN INDICATION
     Dosage: THERAPY DURATION: 2.0 DAYS
     Route: 048
  2. CELLCEPT [Suspect]
     Dosage: THERAPY DURATION: 4.0 DAYS
     Route: 048
  3. CELLCEPT [Suspect]
     Dosage: THERAPY DURATION: 9.0 DAYS
     Route: 048
  4. CELLCEPT [Suspect]
     Dosage: THERAPY DURATION: 4.0 DAYS
     Route: 048
  5. GANCICLOVIR [Suspect]
     Indication: PRODUCT USED FOR UNKNOWN INDICATION
     Dosage: THERAPY DURATION: 10 DAYS
     Route: 042
  6. MYFORTIC [Suspect]
     Indication: PRODUCT USED FOR UNKNOWN INDICATION
     Dosage: THERAPY DURATION: 4.0 DAYS
     Route: 048
  7. ACETAMINOPHEN [Concomitant]
     Route: 048
  8. ACETAZOLAMIDE [Concomitant]
     Route: 048
  9. CALCIUM CARBONATE [Concomitant]
     Route: 048
  10. CHOLECALCIFEROL [Concomitant]
     Route: 048
  11. HYDROXYCHLOROQUINE [Concomitant]
     Route: 048
  12. METHYLPREDNISOLONE [Concomitant]
     Route: 042
  13. MIDAZOLAM HYDROCHLORIDE [Concomitant]
     Route: 042
  14. PREDNISONE [Concomitant]
     Route: 048

REACTIONS (5)
  - Anaemia [Recovered/Resolved]
  - Diarrhoea [Recovered/Resolved]
  - Dyspnoea [Recovered/Resolved]
  - Fatigue [Recovered/Resolved]
  - Haemoglobin decreased [Recovered/Resolved]
